FAERS Safety Report 19735091 (Version 1)
Quarter: 2021Q3

REPORT INFORMATION
  Report Type: Spontaneous
  Country: US (occurrence: US)
  Receive Date: 20210823
  Receipt Date: 20210823
  Transmission Date: 20211014
  Serious: No
  Sender: FDA-Public Use
  Company Number: US-GLAXOSMITHKLINE-US2021AMR176005

PATIENT
  Sex: Male

DRUGS (1)
  1. TRELEGY ELLIPTA [Suspect]
     Active Substance: FLUTICASONE FUROATE\UMECLIDINIUM BROMIDE\VILANTEROL TRIFENATATE
     Indication: PRODUCT USED FOR UNKNOWN INDICATION
     Dosage: UNK200MCG/62.5 MCG/25 MCG
     Dates: start: 202106

REACTIONS (5)
  - Prostatic disorder [Unknown]
  - Depression [Unknown]
  - Urine flow decreased [Unknown]
  - Dysuria [Unknown]
  - Polyuria [Unknown]

NARRATIVE: CASE EVENT DATE: 2021
